FAERS Safety Report 5279654-6 (Version None)
Quarter: 2007Q1

REPORT INFORMATION
  Report Type: 
  Country: None (occurrence: None)
  Receive Date: 20070323
  Receipt Date: 20070313
  Transmission Date: 20070707
  Serious: Yes (Other)
  Sender: FDA-Public Use
  Company Number: 2007SP004844

PATIENT
  Age: 58 Year
  Sex: Male

DRUGS (4)
  1. PEG-INTRON [Suspect]
     Indication: HEPATITIS C
     Dates: start: 20030101
  2. PEG-INTRON [Suspect]
     Indication: HEPATITIS C
     Dates: start: 20070309
  3. RIBAVIRIN [Suspect]
     Indication: HEPATITIS C
     Dosage: ; PO
     Route: 048
     Dates: start: 20030101
  4. RIBAVIRIN [Suspect]
     Indication: HEPATITIS C
     Dosage: ; PO
     Route: 048
     Dates: start: 20070309

REACTIONS (3)
  - INFLUENZA LIKE ILLNESS [None]
  - PHLEBITIS [None]
  - PNEUMONIA [None]
